FAERS Safety Report 22123332 (Version 1)
Quarter: 2023Q1

REPORT INFORMATION
  Report Type: Report from Study
  Country: US (occurrence: US)
  Receive Date: 20230322
  Receipt Date: 20230322
  Transmission Date: 20230417
  Serious: No
  Sender: FDA-Public Use
  Company Number: US-002147023-NVSC2023US060983

PATIENT
  Sex: Female
  Weight: 80.272 kg

DRUGS (7)
  1. METHOTREXATE [Suspect]
     Active Substance: METHOTREXATE
     Indication: Psoriasis
     Dosage: 2.5 MG, BID
     Route: 048
  2. FLUOCINONIDE [Suspect]
     Active Substance: FLUOCINONIDE
     Indication: Psoriasis
     Dosage: 0.05 %, PRN, (FREQUENCY AS NEEDED)
     Route: 061
  3. MOMETASONE [Suspect]
     Active Substance: MOMETASONE
     Indication: Psoriasis
     Dosage: 0.1 %, PRN, (FREQUENCY AS NEEDED)
     Route: 061
  4. FLUOCINOLONE [Suspect]
     Active Substance: FLUOCINOLONE
     Indication: Psoriasis
     Dosage: 0.01 %, PRN, (FREQUENCY AS NEEDED, OTHER DOSAGE TOPICAL OIL)
     Route: 061
  5. CLOBETASOL [Suspect]
     Active Substance: CLOBETASOL
     Indication: Psoriasis
     Dosage: 0.05 %, PRN
     Route: 061
  6. CLOBETASOL [Suspect]
     Active Substance: CLOBETASOL
     Indication: Psoriasis
     Dosage: 0.05 %, PRN
     Route: 061
  7. FOLIC ACID [Suspect]
     Active Substance: FOLIC ACID
     Indication: Psoriasis
     Dosage: 1 MG, QD
     Route: 048

REACTIONS (1)
  - Drug ineffective [Unknown]
